FAERS Safety Report 6381754-4 (Version None)
Quarter: 2009Q3

REPORT INFORMATION
  Report Type: 
  Country: None (occurrence: None)
  Receive Date: 20090930
  Receipt Date: 20090923
  Transmission Date: 20100115
  Serious: Yes (Death, Hospitalization)
  Sender: FDA-Public Use
  Company Number: PHHO2007IL09338

PATIENT
  Sex: Female
  Weight: 54 kg

DRUGS (5)
  1. AMN107 AMN+CAP [Suspect]
     Indication: CHRONIC MYELOID LEUKAEMIA
     Dosage: 800MG
     Route: 048
     Dates: start: 20070530, end: 20070603
  2. AMN107 AMN+CAP [Suspect]
     Dosage: UNK, NO TREATMENT
     Dates: start: 20070604, end: 20070809
  3. AMN107 AMN+CAP [Suspect]
     Dosage: 800 MG, UNK
     Route: 048
     Dates: start: 20070810, end: 20070810
  4. FUROSEMIDE [Concomitant]
  5. LEVOPHED [Concomitant]

REACTIONS (19)
  - ABDOMINAL PAIN UPPER [None]
  - ANAEMIA [None]
  - ASTHENIA [None]
  - ATRIAL FIBRILLATION [None]
  - BLAST CRISIS IN MYELOGENOUS LEUKAEMIA [None]
  - CHRONIC MYELOID LEUKAEMIA [None]
  - DYSPNOEA [None]
  - HYPERCAPNIA [None]
  - HYPOTENSION [None]
  - LEUKAPHERESIS [None]
  - LEUKOCYTOSIS [None]
  - LOSS OF CONSCIOUSNESS [None]
  - MECHANICAL VENTILATION [None]
  - PNEUMONIA [None]
  - PYREXIA [None]
  - RASH [None]
  - RESPIRATORY ACIDOSIS [None]
  - RESPIRATORY FAILURE [None]
  - WHITE BLOOD CELL COUNT INCREASED [None]
